FAERS Safety Report 6775492-3 (Version None)
Quarter: 2010Q2

REPORT INFORMATION
  Report Type: 
  Country: None (occurrence: None)
  Receive Date: 20100617
  Receipt Date: 20100607
  Transmission Date: 20101027
  Serious: Yes (Hospitalization, Other)
  Sender: FDA-Public Use
  Company Number: JP-BRISTOL-MYERS SQUIBB COMPANY-15117906

PATIENT
  Age: 41 Year
  Sex: Female
  Weight: 59 kg

DRUGS (5)
  1. ABILIFY [Suspect]
     Indication: SCHIZOPHRENIA
     Dosage: 3 MG FOR MORNING AND 3 MG FOR EVENING.
     Dates: start: 20060626, end: 20060712
  2. CONSTAN [Concomitant]
     Dosage: TABLET
     Dates: end: 20091221
  3. BENZALIN [Concomitant]
     Dosage: TABLET
  4. LULLAN [Concomitant]
     Indication: SCHIZOPHRENIA
     Dosage: 1 DF = 4 TO 12 MG/DAY.
     Dates: start: 20010514, end: 20060719
  5. LORAZEPAM [Concomitant]
     Dosage: TABLET
     Dates: start: 20030806

REACTIONS (3)
  - HALLUCINATION, VISUAL [None]
  - HYPERKINESIA [None]
  - LOGORRHOEA [None]
